FAERS Safety Report 7995911-4 (Version None)
Quarter: 2011Q4

REPORT INFORMATION
  Report Type: 
  Country: None (occurrence: None)
  Receive Date: 20111220
  Receipt Date: 20111214
  Transmission Date: 20120403
  Serious: Yes (Hospitalization, Other)
  Sender: FDA-Public Use
  Company Number: CHPA2011US018058

PATIENT
  Age: 85 Year
  Sex: Female

DRUGS (4)
  1. PREVACID 24 HR [Suspect]
     Indication: ABDOMINAL DISTENSION
     Dosage: 15 MG, QD
     Route: 048
     Dates: start: 20090101
  2. SENNA [Concomitant]
     Indication: CONSTIPATION
     Dosage: UNK, PRN
     Route: 048
     Dates: start: 20111101
  3. COLACE [Concomitant]
     Indication: FAECES HARD
     Dosage: UNK, PRN
     Route: 048
     Dates: start: 20111101
  4. BENICAR [Concomitant]
     Indication: HYPERTENSION
     Dosage: UNK, QD
     Route: 048
     Dates: start: 20110101

REACTIONS (9)
  - PAIN IN EXTREMITY [None]
  - VOMITING [None]
  - OFF LABEL USE [None]
  - HYPERTENSION [None]
  - DIZZINESS [None]
  - NAUSEA [None]
  - MYOCARDIAL INFARCTION [None]
  - ROAD TRAFFIC ACCIDENT [None]
  - INCORRECT DRUG ADMINISTRATION DURATION [None]
